FAERS Safety Report 7369466-1 (Version None)
Quarter: 2011Q1

REPORT INFORMATION
  Report Type: 
  Country: None (occurrence: None)
  Receive Date: 20110323
  Receipt Date: 20110308
  Transmission Date: 20110831
  Serious: Yes (Other)
  Sender: FDA-Public Use
  Company Number: PHHY2011AR19165

PATIENT
  Age: 68 Year
  Sex: Female

DRUGS (4)
  1. INTERFERON GAMMA [Concomitant]
     Dosage: 5 X 10^6 U/M^2/DAY
  2. IMATINIB MESYLATE [Suspect]
     Indication: CHRONIC MYELOID LEUKAEMIA
     Dosage: 400 MG, DAILY
     Route: 030
     Dates: start: 20031001
  3. HYDROXYUREA [Concomitant]
     Indication: CHRONIC MYELOID LEUKAEMIA
     Dosage: 1 G, DAILY
     Route: 048
  4. HYDROXYUREA [Concomitant]
     Dosage: 1 G, DAILY
     Route: 048
     Dates: start: 20040701

REACTIONS (3)
  - ARTHRALGIA [None]
  - PEMPHIGUS [None]
  - DRUG INTOLERANCE [None]
